FAERS Safety Report 6023956-2 (Version None)
Quarter: 2008Q4

REPORT INFORMATION
  Report Type: 
  Country: None (occurrence: None)
  Receive Date: 20081230
  Receipt Date: 20081211
  Transmission Date: 20090506
  Serious: No
  Sender: FDA-Public Use
  Company Number: US-B.I. PHARMACEUTICALS,INC./RIDGEFIELD-2008-BP-11706BP

PATIENT
  Sex: Female

DRUGS (5)
  1. MICARDIS [Suspect]
     Indication: HYPERTENSION
     Dosage: 40MG
     Route: 048
     Dates: start: 20050101
  2. CALCIUM [Concomitant]
  3. BIOTIN [Concomitant]
  4. VITAMIN B-12 [Concomitant]
  5. OMEGA 3 OILS [Concomitant]

REACTIONS (1)
  - HEADACHE [None]
